FAERS Safety Report 7489922-5 (Version None)
Quarter: 2011Q2

REPORT INFORMATION
  Report Type: 
  Country: None (occurrence: None)
  Receive Date: 20110512
  Receipt Date: 20110427
  Transmission Date: 20111010
  Serious: Yes (Hospitalization, Other)
  Sender: FDA-Public Use
  Company Number: 006831

PATIENT
  Sex: Female

DRUGS (15)
  1. ALFACALCIDOL [Concomitant]
  2. PREDNISOLONE [Concomitant]
  3. PIRMENOL HYDROCHLORIDE [Concomitant]
  4. TIZANIDINE HYDROCHLORIDE [Concomitant]
  5. DICLOFENAC SODIUM [Concomitant]
  6. KETOPROFEN [Concomitant]
  7. ALENDRONATE SODIUM [Concomitant]
  8. TRIAZOLAM [Concomitant]
  9. TIZANIDINE HYDROCHLORIDE [Concomitant]
  10. LOXOPROFEN SODIUM [Concomitant]
  11. CERTOLIZUMAB PEGOL (CDP870) [Suspect]
     Indication: RHEUMATOID ARTHRITIS
     Dosage: SEE IMAGE
     Route: 058
     Dates: start: 20100202, end: 20110118
  12. CERTOLIZUMAB PEGOL (CDP870) [Suspect]
     Indication: RHEUMATOID ARTHRITIS
     Dosage: SEE IMAGE
     Route: 058
     Dates: start: 20110202, end: 20110301
  13. ELCATONIN [Concomitant]
  14. CELECOXIB [Concomitant]
  15. POLAPREZINC [Concomitant]

REACTIONS (4)
  - LYMPHOMA [None]
  - LUMBAR SPINAL STENOSIS [None]
  - MUSCLE TIGHTNESS [None]
  - SPINAL COMPRESSION FRACTURE [None]
